FAERS Safety Report 10056842 (Version 3)
Quarter: 2014Q4

REPORT INFORMATION
  Report Type: Report from Study
  Country: ES (occurrence: ES)
  Receive Date: 20140403
  Receipt Date: 20141027
  Transmission Date: 20150528
  Serious: Yes (Hospitalization)
  Sender: FDA-Public Use
  Company Number: ES-009507513-0905USA01024

PATIENT
  Age: 71 Year
  Sex: Female
  Weight: 63 kg

DRUGS (5)
  1. VALSARTAN. [Concomitant]
     Active Substance: VALSARTAN
     Dosage: 80 DAILY DOSE
     Route: 048
     Dates: start: 20080724
  2. AAS [Concomitant]
     Active Substance: ASPIRIN
     Dosage: 100 DAILY DOSE
     Route: 048
     Dates: start: 20070321
  3. SIMVASTATIN. [Suspect]
     Active Substance: SIMVASTATIN
     Indication: ACUTE CORONARY SYNDROME
     Dosage: UNK
     Route: 048
     Dates: start: 20070321
  4. CARVEDILOL. [Concomitant]
     Active Substance: CARVEDILOL
     Dosage: 12.5 DAILY DOSE
     Route: 048
     Dates: start: 20070321
  5. CYTARABINE (+) DOXORUBICIN [Concomitant]
     Dosage: 100 MG, QD
     Route: 048
     Dates: start: 20070321

REACTIONS (3)
  - Cholelithiasis [Recovered/Resolved]
  - Cholangitis acute [Recovered/Resolved]
  - Cholecystitis [Recovered/Resolved]

NARRATIVE: CASE EVENT DATE: 20080508
